FAERS Safety Report 10003608 (Version 2)
Quarter: 2014Q1

REPORT INFORMATION
  Report Type: Spontaneous
  Country: US (occurrence: US)
  Receive Date: 20140312
  Receipt Date: 20140312
  Transmission Date: 20141002
  Serious: No
  Sender: FDA-Public Use
  Company Number: US-INCYTE CORPORATION-2013IN002675

PATIENT
  Age: 81 Year
  Sex: Female

DRUGS (9)
  1. JAKAFI [Suspect]
     Indication: MYELOFIBROSIS
     Dosage: 5 MG, BID
     Route: 048
     Dates: start: 201307, end: 20131111
  2. JAKAFI [Suspect]
     Dosage: 5 MG, BID
     Route: 048
     Dates: end: 20140114
  3. FLOVENT [Concomitant]
  4. LORAZEPAM [Concomitant]
  5. LEVOTHYROXINE [Concomitant]
  6. METHADONE [Concomitant]
  7. OMEPRAZOLE [Concomitant]
  8. PREDNISONE [Concomitant]
  9. SUCRALFATE [Concomitant]

REACTIONS (2)
  - Adverse drug reaction [Unknown]
  - Thrombocytopenia [Unknown]
